FAERS Safety Report 4930727-4 (Version None)
Quarter: 2006Q1

REPORT INFORMATION
  Report Type: 
  Country: None (occurrence: None)
  Receive Date: 20060227
  Receipt Date: 20060217
  Transmission Date: 20060701
  Serious: Yes (Other)
  Sender: FDA-Public Use
  Company Number: 2006024116

PATIENT
  Age: 34 Year
  Sex: Male

DRUGS (2)
  1. GEODON [Suspect]
     Indication: SCHIZOPHRENIA
     Dosage: 160 MG 80 MG AT BEDTIME
     Dates: end: 20060216
  2. SEROQUEL [Concomitant]

REACTIONS (1)
  - PAINFUL ERECTION [None]
